FAERS Safety Report 11113078 (Version 1)
Quarter: 2015Q2

REPORT INFORMATION
  Report Type: Spontaneous
  Country: BE (occurrence: BE)
  Receive Date: 20150514
  Receipt Date: 20150514
  Transmission Date: 20150821
  Serious: Yes (Other)
  Sender: FDA-Public Use
  Company Number: PHHY2014BE173635

PATIENT
  Sex: Female

DRUGS (1)
  1. FEMARA [Suspect]
     Active Substance: LETROZOLE
     Indication: BREAST CANCER
     Dosage: 2.5 MG, QD
     Route: 048
     Dates: start: 2009, end: 201303

REACTIONS (9)
  - Lymphadenopathy [Unknown]
  - Metabolic disorder [Recovered/Resolved]
  - Metastasis [Unknown]
  - Pulmonary mass [Unknown]
  - Tooth disorder [Unknown]
  - Carbohydrate antigen 15-3 increased [Unknown]
  - Breast cancer [Unknown]
  - Malignant neoplasm progression [Unknown]
  - General physical health deterioration [Unknown]

NARRATIVE: CASE EVENT DATE: 2013
